FAERS Safety Report 24537493 (Version 2)
Quarter: 2024Q4

REPORT INFORMATION
  Report Type: Report from Study
  Country: AT (occurrence: AT)
  Receive Date: 20241023
  Receipt Date: 20241203
  Transmission Date: 20250115
  Serious: Yes (Congenital Anomaly)
  Sender: ABBVIE
  Company Number: AT-ABBVIE-5969283

PATIENT

DRUGS (4)
  1. LOPINAVIR AND RITONAVIR [Suspect]
     Active Substance: LOPINAVIR\RITONAVIR
     Indication: Maternal exposure timing unspecified
     Route: 064
  2. ZIDOVUDINE [Suspect]
     Active Substance: ZIDOVUDINE
     Indication: Maternal exposure timing unspecified
     Route: 064
  3. FUZEON [Suspect]
     Active Substance: ENFUVIRTIDE
     Indication: Maternal exposure timing unspecified
     Route: 064
  4. PREZISTA [Suspect]
     Active Substance: DARUNAVIR ETHANOLATE
     Indication: Maternal exposure timing unspecified
     Route: 064

REACTIONS (2)
  - Plagiocephaly [Unknown]
  - Foetal exposure during pregnancy [Unknown]
